FAERS Safety Report 21369831 (Version 3)
Quarter: 2022Q4

REPORT INFORMATION
  Report Type: Report from Study
  Country: MX (occurrence: MX)
  Receive Date: 20220923
  Receipt Date: 20221118
  Transmission Date: 20230113
  Serious: Yes (Other)
  Sender: FDA-Public Use
  Company Number: MX-NOVARTISPH-NVSC2022MX036344

PATIENT
  Age: 45 Year
  Sex: Female
  Weight: 62 kg

DRUGS (1)
  1. TASIGNA [Suspect]
     Active Substance: NILOTINIB
     Indication: Chronic myeloid leukaemia
     Dosage: UNK
     Route: 048

REACTIONS (16)
  - Heavy menstrual bleeding [Recovering/Resolving]
  - Asphyxia [Unknown]
  - Anaemia [Unknown]
  - Hunger [Unknown]
  - Dizziness [Unknown]
  - Gastritis [Unknown]
  - Yellow skin [Recovering/Resolving]
  - Feeling hot [Unknown]
  - Weight increased [Unknown]
  - Intermenstrual bleeding [Not Recovered/Not Resolved]
  - Weight decreased [Unknown]
  - Malaise [Unknown]
  - Abdominal pain [Unknown]
  - Arthralgia [Unknown]
  - Abdominal discomfort [Unknown]
  - Fatigue [Unknown]

NARRATIVE: CASE EVENT DATE: 20220124
